FAERS Safety Report 9667949 (Version 1)
Quarter: 2013Q4

REPORT INFORMATION
  Report Type: Spontaneous
  Country: US (occurrence: US)
  Receive Date: 20131104
  Receipt Date: 20131104
  Transmission Date: 20140711
  Serious: Yes (Death)
  Sender: FDA-Public Use
  Company Number: US-GLAXOSMITHKLINE-A1007834A

PATIENT
  Age: 62 Year
  Sex: Male

DRUGS (3)
  1. ADVAIR [Suspect]
     Indication: CHRONIC OBSTRUCTIVE PULMONARY DISEASE
     Dosage: 1PUFF TWICE PER DAY
     Route: 055
     Dates: start: 201005
  2. VENTOLIN [Suspect]
     Indication: CHRONIC OBSTRUCTIVE PULMONARY DISEASE
     Dosage: 90MCG AS REQUIRED
     Route: 055
     Dates: start: 201005
  3. NO CONCURRENT MEDICATION [Concomitant]

REACTIONS (5)
  - Neoplasm malignant [Fatal]
  - Dyspnoea [Recovered/Resolved]
  - Poor quality sleep [Recovered/Resolved]
  - Chest discomfort [Recovered/Resolved]
  - Psoriasis [Fatal]
